FAERS Safety Report 10615123 (Version 1)
Quarter: 2014Q4

REPORT INFORMATION
  Report Type: Spontaneous
  Country: PK (occurrence: PK)
  Receive Date: 20141201
  Receipt Date: 20141201
  Transmission Date: 20150529
  Serious: Yes (Hospitalization)
  Sender: FDA-Public Use
  Company Number: PHHY2014PK156006

PATIENT
  Age: 70 Year
  Sex: Female

DRUGS (1)
  1. EXELON PATCH [Suspect]
     Active Substance: RIVASTIGMINE
     Indication: DEMENTIA
     Dosage: 4.6 MG/ HOURS
     Route: 062
     Dates: start: 20141028, end: 20141031

REACTIONS (1)
  - Blood urea increased [Recovering/Resolving]

NARRATIVE: CASE EVENT DATE: 20141031
